FAERS Safety Report 7088067-6 (Version None)
Quarter: 2010Q4

REPORT INFORMATION
  Report Type: 
  Country: None (occurrence: None)
  Receive Date: 20101108
  Receipt Date: 20101104
  Transmission Date: 20110411
  Serious: Yes (Death)
  Sender: FDA-Public Use
  Company Number: PHHY2010BR74451

PATIENT
  Sex: Male

DRUGS (4)
  1. DIOVAN HCT [Suspect]
     Dosage: 320/12.5 MG
     Route: 048
  2. RASILEZ [Suspect]
     Dosage: 300 MG, UNK
     Route: 048
  3. CONCOR [Concomitant]
     Dosage: 5 MG, UNK
  4. AUDAXONE [Concomitant]

REACTIONS (1)
  - DEATH [None]
